FAERS Safety Report 6220981-3 (Version None)
Quarter: 2009Q2

REPORT INFORMATION
  Report Type: 
  Country: None (occurrence: None)
  Receive Date: 20090610
  Receipt Date: 20090529
  Transmission Date: 20091009
  Serious: Yes (Hospitalization, Other)
  Sender: FDA-Public Use
  Company Number: US-ELI_LILLY_AND_COMPANY-US200905005989

PATIENT
  Age: 66 Year
  Sex: Female

DRUGS (2)
  1. ALIMTA [Suspect]
     Indication: PLEURAL MESOTHELIOMA MALIGNANT
     Dosage: UNK, OTHER
     Dates: start: 20080801, end: 20090201
  2. CISPLATIN [Concomitant]
     Indication: PLEURAL MESOTHELIOMA
     Dates: start: 20080801

REACTIONS (4)
  - EMBOLIC STROKE [None]
  - NEUROLOGICAL SYMPTOM [None]
  - NEUROTOXICITY [None]
  - PANCYTOPENIA [None]
